FAERS Safety Report 11175924 (Version 1)
Quarter: 2015Q2

REPORT INFORMATION
  Report Type: Spontaneous
  Country: CN (occurrence: CN)
  Receive Date: 20150609
  Receipt Date: 20150609
  Transmission Date: 20150821
  Serious: Yes (Hospitalization, Other)
  Sender: FDA-Public Use
  Company Number: CN-MYLANLABS-2015M1018494

PATIENT

DRUGS (1)
  1. METHIMAZOLE. [Suspect]
     Active Substance: METHIMAZOLE
     Indication: HYPERTHYROIDISM
     Dosage: 30 MG/DAY
     Route: 065

REACTIONS (3)
  - Necrosis ischaemic [Not Recovered/Not Resolved]
  - Agranulocytosis [Recovered/Resolved]
  - Bronchopulmonary aspergillosis [Recovering/Resolving]
